FAERS Safety Report 5657376-7 (Version None)
Quarter: 2008Q1

REPORT INFORMATION
  Report Type: 
  Country: None (occurrence: None)
  Receive Date: 20080310
  Receipt Date: 20080227
  Transmission Date: 20080703
  Serious: Yes (Death, Hospitalization)
  Sender: FDA-Public Use
  Company Number: JP-PFIZER INC-2007056739

PATIENT
  Age: 73 Year
  Sex: Female
  Weight: 53 kg

DRUGS (13)
  1. IRINOTECAN HCL [Suspect]
     Indication: GASTRIC CANCER
  2. IRINOTECAN HCL [Suspect]
  3. CISPLATIN [Suspect]
     Indication: GASTRIC CANCER
  4. CISPLATIN [Suspect]
  5. DECADRON [Concomitant]
     Indication: PREMEDICATION
     Dates: start: 20070507, end: 20070603
  6. DECADRON [Concomitant]
     Dates: start: 20070604, end: 20070618
  7. NASEA [Concomitant]
     Indication: PREMEDICATION
     Dates: start: 20070507, end: 20070521
  8. PRIMPERAN INJ [Concomitant]
     Indication: PREMEDICATION
     Dates: start: 20070507, end: 20070521
  9. FULCALIQ [Concomitant]
     Indication: NUTRITIONAL SUPPORT
     Dates: start: 20070527, end: 20070611
  10. FULCALIQ [Concomitant]
     Dates: start: 20070612, end: 20070618
  11. SANDOSTATIN [Concomitant]
     Dates: start: 20070601, end: 20070618
  12. ALL OTHER THERAPEUTIC PRODUCTS [Concomitant]
     Indication: BRAIN OEDEMA
     Dates: start: 20070611, end: 20070618
  13. PERDIPINE [Concomitant]
     Dates: start: 20070618

REACTIONS (5)
  - ALTERED STATE OF CONSCIOUSNESS [None]
  - DIARRHOEA [None]
  - LEUKOPENIA [None]
  - NEUTROPENIA [None]
  - THROMBOCYTOPENIA [None]
